FAERS Safety Report 23152231 (Version 3)
Quarter: 2023Q4

REPORT INFORMATION
  Report Type: Report from Study
  Country: US (occurrence: US)
  Receive Date: 20231107
  Receipt Date: 20231120
  Transmission Date: 20240109
  Serious: Yes (Death, Hospitalization)
  Sender: FDA-Public Use
  Company Number: US-ABBVIE-5483204

PATIENT
  Age: 67 Year
  Sex: Male
  Weight: 119.74 kg

DRUGS (2)
  1. VENCLEXTA [Suspect]
     Active Substance: VENETOCLAX
     Indication: Acute myeloid leukaemia
     Dosage: FORM STRENGTH: 100MG
     Route: 048
     Dates: start: 20220628, end: 20230628
  2. VENCLEXTA [Suspect]
     Active Substance: VENETOCLAX
     Indication: Acute myeloid leukaemia
     Dosage: FORM STRENGTH: 100MG
     Route: 048
     Dates: start: 20230629, end: 20231026

REACTIONS (6)
  - Pneumonia fungal [Fatal]
  - Lung infiltration [Not Recovered/Not Resolved]
  - Febrile neutropenia [Not Recovered/Not Resolved]
  - Polyuria [Not Recovered/Not Resolved]
  - Lung disorder [Not Recovered/Not Resolved]
  - Fungal infection [Fatal]

NARRATIVE: CASE EVENT DATE: 20231001
